FAERS Safety Report 7883207-0 (Version None)
Quarter: 2011Q4

REPORT INFORMATION
  Report Type: 
  Country: None (occurrence: None)
  Receive Date: 20111031
  Receipt Date: 20111026
  Transmission Date: 20120403
  Serious: No
  Sender: FDA-Public Use
  Company Number: 2011-01303

PATIENT
  Age: 26 Year
  Sex: Male
  Weight: 132.4503 kg

DRUGS (1)
  1. ZICAM COLD REMEDY NASAL GEL [Suspect]
     Indication: NASOPHARYNGITIS

REACTIONS (3)
  - NASAL DISCOMFORT [None]
  - ANOSMIA [None]
  - BURNING SENSATION [None]
